FAERS Safety Report 11128536 (Version 1)
Quarter: 2015Q2

REPORT INFORMATION
  Report Type: Spontaneous
  Country: AT (occurrence: AT)
  Receive Date: 20150521
  Receipt Date: 20150521
  Transmission Date: 20150821
  Serious: Yes (Other)
  Sender: FDA-Public Use
  Company Number: PHHY2015AT058375

PATIENT
  Sex: Male
  Weight: 82 kg

DRUGS (1)
  1. SIMVASTATIN. [Suspect]
     Active Substance: SIMVASTATIN
     Indication: HYPERCHOLESTEROLAEMIA
     Dosage: 20 MG, UNK
     Route: 048
     Dates: start: 20150225, end: 20150410

REACTIONS (7)
  - Bronchitis bacterial [Recovering/Resolving]
  - Conjunctivitis [Recovering/Resolving]
  - Abscess jaw [Recovering/Resolving]
  - Infection susceptibility increased [Recovering/Resolving]
  - Lung infection [Recovering/Resolving]
  - Cough [Recovering/Resolving]
  - Sinusitis [Recovering/Resolving]
